FAERS Safety Report 8799064 (Version 1)
Quarter: 2012Q4

REPORT INFORMATION
  Report Type: 
  Country: US (occurrence: US)
  Receive Date: 20120920
  Receipt Date: 20120920
  Transmission Date: 20130627
  Serious: No
  Sender: FDA-Public Use
  Company Number: US-ASTRAZENECA-2011SE03489

PATIENT
  Age: 62 Year
  Sex: Female

DRUGS (38)
  1. NEXIUM [Suspect]
     Route: 048
  2. ZESTRIL [Suspect]
     Route: 048
  3. TOPROL XL [Suspect]
     Route: 048
     Dates: start: 20110107
  4. CRESTOR [Suspect]
     Indication: HYPERCHOLESTEROLAEMIA
     Route: 048
  5. CRESTOR [Suspect]
     Indication: CARDIOVASCULAR EVENT PROPHYLAXIS
     Route: 048
  6. ASPIRIN EC [Concomitant]
     Route: 048
     Dates: start: 20100904
  7. ASPIRIN EC [Concomitant]
     Route: 048
     Dates: start: 201010
  8. ASPIRIN EC [Concomitant]
     Route: 048
  9. ACYCLOVIR [Concomitant]
     Route: 048
     Dates: start: 20110105
  10. ALPRAZOLAM [Concomitant]
     Indication: ANXIETY
     Dosage: 0.5 -1 mg, THREE TIMES DAILY AS NEEDED
     Route: 048
     Dates: start: 20100924
  11. ANASPAZ [Concomitant]
     Route: 048
     Dates: start: 20101117
  12. KLONOPIN EQUIVALENT [Concomitant]
     Route: 048
     Dates: start: 20020925
  13. PLAVIX [Concomitant]
     Indication: ACUTE CORONARY SYNDROME
     Route: 048
     Dates: start: 20100908
  14. HYGROTON [Concomitant]
     Route: 048
  15. IMDUR [Concomitant]
     Indication: ISCHAEMIC HEART DISEASE PROPHYLAXIS
     Route: 048
     Dates: start: 20100908
  16. IMDUR [Concomitant]
     Indication: ISCHAEMIC HEART DISEASE PROPHYLAXIS
     Route: 048
  17. LIDODERM [Concomitant]
     Dosage: PLACE INTO VAGINA THREE TIMES A DAY AS NEEDED
     Route: 067
     Dates: start: 20110103
  18. LIDODERM [Concomitant]
     Dosage: USE PATCHES AS DIRECTED DAILY AS NEEDED
     Route: 058
     Dates: start: 20091209
  19. VISTARIL [Concomitant]
     Indication: COUGH
     Route: 048
  20. WELLBUTRIN XL [Concomitant]
     Route: 048
     Dates: start: 20060609
  21. MILK OF MAGNESIA [Concomitant]
     Dosage: 400 MG/5 ML, TAKE 15-30 ML, EVERY EVENING
     Route: 048
  22. ROBAXIN EQUIVALENT [Concomitant]
     Indication: MUSCLE SPASMS
     Route: 048
  23. NITROGLYCERIN [Concomitant]
     Indication: ANGINA PECTORIS
     Dosage: PLACE OE TABLET, EVERY 5 MINUTES AS NEEDED
     Route: 060
     Dates: start: 20100904
  24. NITROGLYCERIN [Concomitant]
     Indication: CHEST PAIN
     Dosage: PLACE OE TABLET, EVERY 5 MINUTES AS NEEDED
     Route: 060
     Dates: start: 20100904
  25. ZOFRAN [Concomitant]
     Indication: NAUSEA
     Route: 048
  26. SENNA-DOCUSATE [Concomitant]
     Dosage: 8.6-50 MG, TWO TABLETS AT BEDTIME
     Route: 048
  27. MULTIVITAMIN [Concomitant]
     Route: 048
  28. COZAAR [Concomitant]
     Indication: HYPERTENSION
     Route: 048
     Dates: start: 20100908
  29. COZAAR [Concomitant]
     Indication: HYPERTENSION
     Route: 048
  30. ULTRAM [Concomitant]
     Indication: PAIN
     Route: 048
  31. CALCIUM CARBONATE [Concomitant]
     Indication: GASTROOESOPHAGEAL REFLUX DISEASE
     Dosage: TAKE 1 TO 2 TABLETS EVERY TWO HOURS AS NEEDED
     Route: 048
     Dates: start: 20100908
  32. AMLODIPINE [Concomitant]
     Indication: HYPERTENSION
     Route: 048
     Dates: start: 20100904
  33. CENTRUM SILVER [Concomitant]
     Dosage: 500 mcg - 250 mcg, TAKE 1 TABLET DAILY
     Route: 048
     Dates: start: 20101117
  34. CYCLOBENZAPRINE [Concomitant]
     Indication: MUSCLE SPASMS
     Route: 048
     Dates: start: 20100611
  35. POTASSIUM CHLORIDE [Concomitant]
     Indication: MINERAL SUPPLEMENTATION
     Route: 048
     Dates: start: 20100904
  36. RANITIDINE [Concomitant]
     Indication: DYSPEPSIA
     Route: 048
     Dates: start: 20100908
  37. SIMVASTATIN [Concomitant]
     Indication: HYPERCHOLESTEROLAEMIA
     Route: 048
     Dates: start: 20100904
  38. SIMVASTATIN [Concomitant]
     Indication: ISCHAEMIC HEART DISEASE PROPHYLAXIS
     Route: 048
     Dates: start: 20100904

REACTIONS (2)
  - Drug hypersensitivity [Unknown]
  - Cough [Unknown]
